FAERS Safety Report 22175756 (Version 2)
Quarter: 2023Q2

REPORT INFORMATION
  Report Type: Spontaneous
  Country: US (occurrence: US)
  Receive Date: 20230405
  Receipt Date: 20230405
  Transmission Date: 20230721
  Serious: No
  Sender: FDA-Public Use
  Company Number: US-PADAGIS-2023PAD00429

PATIENT

DRUGS (9)
  1. BETAMETHASONE DIPROPIONATE USP, 0.05% [Suspect]
     Active Substance: BETAMETHASONE DIPROPIONATE
     Indication: Rash erythematous
     Dosage: UNK
     Route: 065
  2. BETAMETHASONE DIPROPIONATE USP, 0.05% [Suspect]
     Active Substance: BETAMETHASONE DIPROPIONATE
     Indication: Rash pruritic
  3. TRIAMCINOLONE ACETONIDE [Suspect]
     Active Substance: TRIAMCINOLONE ACETONIDE
     Indication: Rash erythematous
     Dosage: UNK
     Route: 065
  4. TRIAMCINOLONE ACETONIDE [Suspect]
     Active Substance: TRIAMCINOLONE ACETONIDE
     Indication: Rash pruritic
  5. DOCETAXEL [Concomitant]
     Active Substance: DOCETAXEL
     Indication: Lung adenocarcinoma
     Dosage: UNK, (THREE CYCLES)
     Route: 042
  6. PEMBROLIZUMAB [Concomitant]
     Active Substance: PEMBROLIZUMAB
     Indication: Lung adenocarcinoma
     Dosage: UNK, (INFUSION)
     Route: 065
  7. CARBOPLATIN [Concomitant]
     Active Substance: CARBOPLATIN
     Indication: Lung adenocarcinoma
     Dosage: UNK, (INFUSION)
     Route: 065
  8. BEVACIZUMAB [Concomitant]
     Active Substance: BEVACIZUMAB
     Indication: Lung adenocarcinoma
     Dosage: UNK, (INFUSION)
     Route: 065
  9. PEMETREXED [Concomitant]
     Active Substance: PEMETREXED
     Indication: Lung adenocarcinoma
     Dosage: UNK, (INFUSION)
     Route: 065

REACTIONS (2)
  - Drug ineffective [Unknown]
  - Therapy partial responder [Unknown]
